FAERS Safety Report 4881973-X (Version None)
Quarter: 2006Q1

REPORT INFORMATION
  Report Type: 
  Country: None (occurrence: None)
  Receive Date: 20060117
  Receipt Date: 20060116
  Transmission Date: 20060701
  Serious: Yes (Hospitalization)
  Sender: FDA-Public Use
  Company Number: FR-LMS-060004

PATIENT
  Age: 52 Year
  Sex: Male

DRUGS (5)
  1. NABUCOX [Suspect]
     Indication: BACK PAIN
     Dosage: 1G TWICE PER DAY
     Route: 048
     Dates: start: 20051219, end: 20051220
  2. NSAIDS [Concomitant]
  3. HYZAAR [Concomitant]
  4. MEDIATOR [Concomitant]
  5. ELISOR [Concomitant]

REACTIONS (3)
  - ANGIONEUROTIC OEDEMA [None]
  - FACE OEDEMA [None]
  - LOCALISED OEDEMA [None]
